FAERS Safety Report 10753136 (Version 1)
Quarter: 2015Q1

REPORT INFORMATION
  Report Type: Spontaneous
  Country: US (occurrence: US)
  Receive Date: 20150130
  Receipt Date: 20150130
  Transmission Date: 20150721
  Serious: No
  Sender: FDA-Public Use
  Company Number: US-PFIZER INC-2015036900

PATIENT
  Age: 71 Year
  Sex: Male
  Weight: 79 kg

DRUGS (6)
  1. WELLBUTRIN [Concomitant]
     Active Substance: BUPROPION HYDROCHLORIDE
     Indication: ANXIETY
  2. WELLBUTRIN [Concomitant]
     Active Substance: BUPROPION HYDROCHLORIDE
     Indication: DEPRESSION
     Dosage: UNK, DAILY
  3. LEVOTHYROXINE [Concomitant]
     Active Substance: LEVOTHYROXINE
     Indication: THYROID DISORDER
     Dosage: UNK, DAILY
  4. ASPIRIN. [Concomitant]
     Active Substance: ASPIRIN
     Dosage: 81 MG, 1X/DAY AT BEDTIME
  5. UROXATRAL [Concomitant]
     Active Substance: ALFUZOSIN HYDROCHLORIDE
     Indication: PROSTATOMEGALY
     Dosage: UNK, DAILY
  6. VIAGRA [Suspect]
     Active Substance: SILDENAFIL CITRATE
     Dosage: 100 MG ONE TABLET 1-2 TIMES A WEEK AS NEEDED
     Route: 048

REACTIONS (1)
  - Drug ineffective [Not Recovered/Not Resolved]
